FAERS Safety Report 20642243 (Version 1)
Quarter: 2022Q1

REPORT INFORMATION
  Report Type: Report from Study
  Country: US (occurrence: US)
  Receive Date: 20220328
  Receipt Date: 20220328
  Transmission Date: 20220423
  Serious: Yes (Other)
  Sender: FDA-Public Use
  Company Number: US-GILEAD-2022-0575046

PATIENT
  Age: 0 Year
  Sex: Male

DRUGS (9)
  1. AZTREONAM LYSINE [Suspect]
     Active Substance: AZTREONAM LYSINE
     Indication: Cystic fibrosis
     Dosage: 75 MG, TID
     Route: 055
     Dates: start: 202107
  2. TOBRAMYCIN [Concomitant]
     Active Substance: TOBRAMYCIN
     Dosage: INHALE 1 AMPULE (300 MG) VIA NEBULIZER TWICE A DAY FOR 28 DAYS ON AND 28 DAYS OFF ALTERNATING MONTHS
  3. CREON [Concomitant]
     Active Substance: PANCRELIPASE AMYLASE\PANCRELIPASE LIPASE\PANCRELIPASE PROTEASE
     Dosage: 9000 UNITS
  4. LACTOBACILLUS ACIDOPHILUS [Concomitant]
     Active Substance: LACTOBACILLUS ACIDOPHILUS
     Dosage: 300MM-250 CAPSULE
  5. GAS RELIEF [Concomitant]
     Active Substance: DIMETHICONE
     Dosage: 0.3ML BY MOUTH AS NEEDED
  6. ALBUTEROL SULFATE [Concomitant]
     Active Substance: ALBUTEROL SULFATE
     Dosage: 2.5 MG/3ML VIAL-NEB
  7. VITAMINS [Concomitant]
     Active Substance: VITAMINS
     Dosage: 1 BY MOUTH
  8. PULMOZYME [Concomitant]
     Active Substance: DORNASE ALFA
     Dosage: 1 MG/ML AMPUL
  9. SODIUM CHLORIDE [Concomitant]
     Active Substance: SODIUM CHLORIDE
     Dosage: 3.5 % VIAL-NEB

REACTIONS (2)
  - Pseudomonas infection [Recovering/Resolving]
  - Off label use [Not Recovered/Not Resolved]

NARRATIVE: CASE EVENT DATE: 20210701
